FAERS Safety Report 8591143-X (Version None)
Quarter: 2012Q3

REPORT INFORMATION
  Report Type: 
  Country: None (occurrence: None)
  Receive Date: 20120813
  Receipt Date: 20120801
  Transmission Date: 20120928
  Serious: Yes (Disabling, Other)
  Sender: FDA-Public Use
  Company Number: JP-ROCHE-1039292

PATIENT
  Sex: Female

DRUGS (4)
  1. RANIBIZUMAB [Suspect]
     Route: 050
     Dates: start: 20110124, end: 20110426
  2. VISUDYNE [Concomitant]
     Dates: start: 20100701
  3. RANIBIZUMAB [Suspect]
     Indication: AGE-RELATED MACULAR DEGENERATION
     Route: 050
     Dates: start: 20100701
  4. VIGAMOX [Concomitant]
     Dates: start: 20101201, end: 20110401

REACTIONS (2)
  - RUPTURED CEREBRAL ANEURYSM [None]
  - THALAMUS HAEMORRHAGE [None]
